FAERS Safety Report 7980751-2 (Version None)
Quarter: 2011Q4

REPORT INFORMATION
  Report Type: 
  Country: None (occurrence: None)
  Receive Date: 20111214
  Receipt Date: 20111205
  Transmission Date: 20120403
  Serious: Yes (Hospitalization)
  Sender: FDA-Public Use
  Company Number: BR-ASTRAZENECA-2011SE74069

PATIENT
  Age: 84 Year
  Sex: Female

DRUGS (2)
  1. ATACAND HCT [Suspect]
     Dosage: 16 MG/5MG
     Route: 048
  2. CRESTOR [Suspect]
     Route: 048

REACTIONS (3)
  - HYPERTENSION [None]
  - OEDEMA PERIPHERAL [None]
  - THROMBOSIS [None]
